FAERS Safety Report 6257638-9 (Version None)
Quarter: 2009Q3

REPORT INFORMATION
  Report Type: 
  Country: None (occurrence: None)
  Receive Date: 20090706
  Receipt Date: 20090629
  Transmission Date: 20100115
  Serious: Yes (Hospitalization)
  Sender: FDA-Public Use
  Company Number: US-AVENTIS-200814393US

PATIENT
  Age: 53 Year
  Sex: Female

DRUGS (4)
  1. APIDRA [Suspect]
     Dosage: DOSE: SLIDING SCALE
     Route: 058
     Dates: start: 20061101
  2. OPTICLIK (INSULIN INJECTION PEN) [Suspect]
  3. LANTUS [Suspect]
     Dosage: DOSE: 14 UNITS AM AND 22 UNITS IN PM
     Route: 058
     Dates: start: 20061101
  4. OPTICLIK (INSULIN INJECTION PEN) [Suspect]

REACTIONS (4)
  - AMNESIA [None]
  - BLOOD GLUCOSE DECREASED [None]
  - CEREBROVASCULAR ACCIDENT [None]
  - WRONG DRUG ADMINISTERED [None]
